FAERS Safety Report 9018459 (Version 1)
Quarter: 2013Q1

REPORT INFORMATION
  Report Type: Spontaneous
  Country: US (occurrence: None)
  Receive Date: 20130111
  Receipt Date: 20130111
  Transmission Date: 20140127
  Serious: Yes (Disabling, Congenital Anomaly)
  Sender: FDA-Public Use
  Company Number: None

PATIENT
  Age: 43 Year
  Sex: Female
  Weight: 55.34 kg

DRUGS (1)
  1. CERVIDIL [Suspect]
     Indication: INDUCED LABOUR
     Dosage: VAG
     Route: 067
     Dates: start: 20010423, end: 20010423

REACTIONS (2)
  - Maternal exposure during delivery [None]
  - Uterine disorder [None]
